FAERS Safety Report 9336512 (Version 1)
Quarter: 2013Q2

REPORT INFORMATION
  Report Type: Spontaneous
  Country: US (occurrence: US)
  Receive Date: 20130607
  Receipt Date: 20130607
  Transmission Date: 20140414
  Serious: No
  Sender: FDA-Public Use
  Company Number: US-PFIZER INC-2013168852

PATIENT
  Sex: Male

DRUGS (1)
  1. LEVOXYL [Suspect]
     Dosage: UNK
     Dates: start: 1988

REACTIONS (4)
  - Irritability [Unknown]
  - Muscle spasms [Unknown]
  - Alopecia [Unknown]
  - Insomnia [Unknown]
